FAERS Safety Report 20951977 (Version 3)
Quarter: 2022Q3

REPORT INFORMATION
  Report Type: Spontaneous
  Country: US (occurrence: US)
  Receive Date: 20220613
  Receipt Date: 20220718
  Transmission Date: 20221027
  Serious: Yes (Other)
  Sender: FDA-Public Use
  Company Number: US-AMGEN-USASP2022098698

PATIENT
  Age: 75 Year
  Sex: Female

DRUGS (3)
  1. PROLIA [Suspect]
     Active Substance: DENOSUMAB
     Indication: Osteoporosis
     Dosage: UNK
     Route: 065
  2. PROLIA [Suspect]
     Active Substance: DENOSUMAB
     Dosage: UNK
     Route: 065
     Dates: start: 20220601
  3. COVID-19 vaccine [Concomitant]
     Dosage: UNK

REACTIONS (7)
  - Multiple fractures [Unknown]
  - Spinal fusion surgery [Unknown]
  - Dental prosthesis placement [Unknown]
  - Toothache [Unknown]
  - Oral discomfort [Not Recovered/Not Resolved]
  - Dental implantation [Unknown]
  - Oral pain [Not Recovered/Not Resolved]

NARRATIVE: CASE EVENT DATE: 20210101
